FAERS Safety Report 21635209 (Version 1)
Quarter: 2022Q4

REPORT INFORMATION
  Report Type: Spontaneous
  Country: US (occurrence: US)
  Receive Date: 20221123
  Receipt Date: 20221123
  Transmission Date: 20230112
  Serious: Yes (Other)
  Sender: FDA-Public Use
  Company Number: US-NOVOPROD-866892

PATIENT
  Age: 63 Year
  Sex: Female
  Weight: 69 kg

DRUGS (2)
  1. INSULIN ASPART [Suspect]
     Active Substance: INSULIN ASPART
     Dosage: TOO HIGH OF A DOSE OF HER INJECTABLE FAST-ACTING MEDICATION
     Route: 065
     Dates: start: 20210504
  2. INSULIN ASPART [Suspect]
     Active Substance: INSULIN ASPART
     Indication: Type 2 diabetes mellitus
     Dosage: 15 IU, QD
     Route: 065
     Dates: start: 2008

REACTIONS (2)
  - Hypoglycaemia [Recovered/Resolved]
  - Accidental overdose [Recovered/Resolved]

NARRATIVE: CASE EVENT DATE: 20210504
